FAERS Safety Report 14230807 (Version 2)
Quarter: 2018Q1

REPORT INFORMATION
  Report Type: Spontaneous
  Country: US (occurrence: US)
  Receive Date: 20171128
  Receipt Date: 20180206
  Transmission Date: 20180508
  Serious: No
  Sender: FDA-Public Use
  Company Number: US-JNJFOC-20171015747

PATIENT
  Age: 25 Year
  Sex: Female
  Weight: 70.31 kg

DRUGS (2)
  1. ZYRTEC [Suspect]
     Active Substance: CETIRIZINE HYDROCHLORIDE
     Indication: ASTHMA
     Dosage: FOR 4 OR 5 YEARS.
     Route: 048
     Dates: end: 20171015
  2. ZYRTEC [Suspect]
     Active Substance: CETIRIZINE HYDROCHLORIDE
     Indication: MULTIPLE ALLERGIES
     Dosage: FOR 4 OR 5 YEARS.
     Route: 048
     Dates: end: 20171015

REACTIONS (4)
  - Pruritus [Recovered/Resolved]
  - Burning sensation [Recovered/Resolved]
  - Product use in unapproved indication [Unknown]
  - Withdrawal syndrome [Recovered/Resolved]
